FAERS Safety Report 6846860-6 (Version None)
Quarter: 2010Q3

REPORT INFORMATION
  Report Type: 
  Country: None (occurrence: None)
  Receive Date: 20100715
  Receipt Date: 20070924
  Transmission Date: 20110219
  Serious: No
  Sender: FDA-Public Use
  Company Number: US-PFIZER INC-2007080331

PATIENT
  Sex: Female
  Weight: 101.4 kg

DRUGS (9)
  1. CHANTIX [Suspect]
     Indication: SMOKING CESSATION THERAPY
     Dates: start: 20070910
  2. COPAXONE [Concomitant]
  3. NEURONTIN [Concomitant]
  4. BACLOFEN [Concomitant]
  5. PROVIGIL [Concomitant]
  6. ZANAFLEX [Concomitant]
  7. VALSARTAN [Concomitant]
  8. LOTREL [Concomitant]
  9. LIPITOR [Concomitant]

REACTIONS (1)
  - HEADACHE [None]
